FAERS Safety Report 5274680-5 (Version None)
Quarter: 2007Q1

REPORT INFORMATION
  Report Type: 
  Country: None (occurrence: None)
  Receive Date: 20070320
  Receipt Date: 20070309
  Transmission Date: 20070707
  Serious: Yes (Hospitalization)
  Sender: FDA-Public Use
  Company Number: 2007BI005761

PATIENT
  Age: 49 Year
  Sex: Female

DRUGS (3)
  1. AVONEX [Suspect]
     Indication: MULTIPLE SCLEROSIS
     Dosage: 30 UG; QW; IM
     Route: 030
     Dates: start: 20041101, end: 20070304
  2. BALCOFEN [Concomitant]
  3. DIAZEPAM [Concomitant]

REACTIONS (7)
  - BLOOD COUNT ABNORMAL [None]
  - CARDIAC DISORDER [None]
  - CYSTITIS [None]
  - MUSCLE SPASMS [None]
  - RENAL IMPAIRMENT [None]
  - UNEVALUABLE EVENT [None]
  - URINARY TRACT INFECTION [None]
